FAERS Safety Report 10269121 (Version 1)
Quarter: 2014Q2

REPORT INFORMATION
  Report Type: Spontaneous
  Country: US (occurrence: US)
  Receive Date: 20140630
  Receipt Date: 20140630
  Transmission Date: 20141212
  Serious: Yes (Other)
  Sender: FDA-Public Use
  Company Number: US-BAXTER-2014BAX034237

PATIENT
  Age: 71 Year
  Sex: Male

DRUGS (1)
  1. VANCOMYCIN INJECTION, USP [Suspect]
     Indication: ARTHRITIS BACTERIAL
     Route: 065

REACTIONS (5)
  - Chondrocalcinosis pyrophosphate [Unknown]
  - Hypotension [Unknown]
  - Secondary hypothyroidism [Unknown]
  - Secondary hypogonadism [Unknown]
  - Pituitary tumour benign [Unknown]
